FAERS Safety Report 16095675 (Version 2)
Quarter: 2019Q2

REPORT INFORMATION
  Report Type: Report from Study
  Country: BR (occurrence: BR)
  Receive Date: 20190320
  Receipt Date: 20190419
  Transmission Date: 20190711
  Serious: Yes (Other)
  Sender: FDA-Public Use
  Company Number: BR-SA-2019SA070235

PATIENT
  Sex: Female
  Weight: 81 kg

DRUGS (1)
  1. INSULIN GLARGINE [Suspect]
     Active Substance: INSULIN GLARGINE
     Indication: TYPE 2 DIABETES MELLITUS
     Dosage: 16 IU, QD AT NIGHT
     Route: 058
     Dates: start: 20150312

REACTIONS (8)
  - Blood glucose increased [Unknown]
  - Injection site bruising [Unknown]
  - Multiple use of single-use product [Unknown]
  - Feeling hot [Unknown]
  - Treatment noncompliance [Unknown]
  - Myocardial infarction [Unknown]
  - Eating disorder [Unknown]
  - Glycosylated haemoglobin increased [Unknown]

NARRATIVE: CASE EVENT DATE: 2016
